FAERS Safety Report 6241723-1 (Version None)
Quarter: 2009Q2

REPORT INFORMATION
  Report Type: 
  Country: None (occurrence: None)
  Receive Date: 20090623
  Receipt Date: 20070205
  Transmission Date: 20091009
  Serious: Yes (Other)
  Sender: FDA-Public Use
  Company Number: JP-ROCHE-481447

PATIENT
  Age: 67 Year
  Sex: Male

DRUGS (3)
  1. INTERFERON ALFA [Suspect]
     Indication: RENAL CANCER METASTATIC
     Dosage: ROUTE REPORTED AS INJECTION.
     Route: 030
  2. INTERFERON ALFA [Suspect]
     Route: 030
  3. INTERFERON ALFA [Suspect]
     Dosage: 5 DAYS PER WEEK. 25 MILLION UNITS PER WEEK. FORM: INFUSION.
     Route: 030

REACTIONS (5)
  - ANAEMIA [None]
  - CEREBELLAR ATAXIA [None]
  - MALIGNANT NEOPLASM PROGRESSION [None]
  - MENTAL DISORDER DUE TO A GENERAL MEDICAL CONDITION [None]
  - PARKINSONISM [None]
